FAERS Safety Report 12594457 (Version 1)
Quarter: 2016Q3

REPORT INFORMATION
  Report Type: Spontaneous
  Country: US (occurrence: US)
  Receive Date: 20160726
  Receipt Date: 20160726
  Transmission Date: 20161109
  Serious: No
  Sender: FDA-Public Use
  Company Number: US-ASTRAZENECA-2016SE77460

PATIENT
  Age: 764 Month
  Sex: Female
  Weight: 68 kg

DRUGS (4)
  1. ANASTRAZOLE [Suspect]
     Active Substance: ANASTROZOLE
     Indication: BREAST CANCER FEMALE
     Route: 048
     Dates: start: 201310, end: 201511
  2. NOLVADEX [Suspect]
     Active Substance: TAMOXIFEN CITRATE
     Indication: INVASIVE DUCTAL BREAST CARCINOMA
     Route: 048
     Dates: start: 20160622
  3. EXEMESTANE. [Concomitant]
     Active Substance: EXEMESTANE
  4. NOLVADEX [Suspect]
     Active Substance: TAMOXIFEN CITRATE
     Indication: INVASIVE DUCTAL BREAST CARCINOMA
     Route: 048
     Dates: start: 20160307, end: 20160412

REACTIONS (12)
  - Impatience [Unknown]
  - Abdominal distension [Unknown]
  - Pelvic discomfort [Unknown]
  - Dyspnoea [Recovering/Resolving]
  - Spinal pain [Recovering/Resolving]
  - Therapy cessation [Unknown]
  - Drug dose omission [Unknown]
  - Uterine leiomyoma [Unknown]
  - Pain in extremity [Unknown]
  - Irritability [Unknown]
  - Vaginal discharge [Unknown]
  - Anxiety [Unknown]

NARRATIVE: CASE EVENT DATE: 20160623
